FAERS Safety Report 12845828 (Version 1)
Quarter: 2016Q4

REPORT INFORMATION
  Report Type: Spontaneous
  Country: TR (occurrence: TR)
  Receive Date: 20161013
  Receipt Date: 20161013
  Transmission Date: 20170207
  Serious: Yes (Hospitalization, Other)
  Sender: FDA-Public Use
  Company Number: TR-SCIEGEN PHARMACEUTICALS INC-2016SCILIT00480

PATIENT
  Age: 15 Year
  Sex: Female

DRUGS (1)
  1. FEXOFENADINE HYDROCHLORIDE TABLETS [Suspect]
     Active Substance: FEXOFENADINE HYDROCHLORIDE
     Indication: URTICARIA
     Dosage: 180 MG, QD AS DAILY TREATMENT
     Route: 065

REACTIONS (3)
  - Mitral valve incompetence [Unknown]
  - Tachycardia [Unknown]
  - Palpitations [Recovering/Resolving]
